FAERS Safety Report 5269884-1 (Version None)
Quarter: 2007Q1

REPORT INFORMATION
  Report Type: 
  Country: None (occurrence: None)
  Receive Date: 20070320
  Receipt Date: 20070309
  Transmission Date: 20070707
  Serious: Yes (Hospitalization)
  Sender: FDA-Public Use
  Company Number: CH-GLAXOSMITHKLINE-B0462196A

PATIENT
  Age: 90 Year
  Sex: Female

DRUGS (7)
  1. AUGMENTIN '125' [Suspect]
     Indication: BRONCHOPNEUMONIA
     Dosage: 1200MG FOUR TIMES PER DAY
     Route: 042
     Dates: start: 20060927, end: 20061006
  2. COZAAR [Suspect]
     Dosage: 50MG PER DAY
     Route: 048
     Dates: start: 20061009, end: 20061017
  3. LASIX [Suspect]
     Indication: DRUG USE FOR UNKNOWN INDICATION
     Dosage: 40MG PER DAY
     Route: 048
     Dates: start: 20061004
  4. CLEXANE [Suspect]
     Indication: DRUG USE FOR UNKNOWN INDICATION
     Dosage: 40MG PER DAY
     Route: 058
     Dates: start: 20060927, end: 20061017
  5. ASPIRIN [Concomitant]
     Indication: DRUG USE FOR UNKNOWN INDICATION
     Dosage: 100MG PER DAY
     Route: 048
  6. ALDACTONE [Concomitant]
     Indication: DRUG USE FOR UNKNOWN INDICATION
     Dosage: 25MG PER DAY
     Route: 048
     Dates: start: 20060927
  7. ALLOPURINOL [Concomitant]
     Indication: DRUG USE FOR UNKNOWN INDICATION
     Route: 065

REACTIONS (10)
  - C-REACTIVE PROTEIN [None]
  - DRUG HYPERSENSITIVITY [None]
  - HENOCH-SCHONLEIN PURPURA [None]
  - HYPERGAMMAGLOBULINAEMIA [None]
  - PETECHIAE [None]
  - RENAL FAILURE ACUTE [None]
  - SKIN NECROSIS [None]
  - SKIN NODULE [None]
  - SKIN ULCER [None]
  - VASCULITIS [None]
